FAERS Safety Report 18703870 (Version 1)
Quarter: 2021Q1

REPORT INFORMATION
  Report Type: Report from Study
  Country: US (occurrence: US)
  Receive Date: 20210105
  Receipt Date: 20210105
  Transmission Date: 20210419
  Serious: Yes (Other)
  Sender: FDA-Public Use
  Company Number: US-UNITED THERAPEUTICS-UNT-2020-020844

PATIENT
  Sex: Female

DRUGS (2)
  1. TREPROSTINIL SODIUM (IV) [Suspect]
     Active Substance: TREPROSTINIL SODIUM
     Indication: PULMONARY ARTERIAL HYPERTENSION
     Dosage: UNK, CONTINUING
     Route: 041
     Dates: start: 20190803
  2. TREPROSTINIL SODIUM (IV) [Suspect]
     Active Substance: TREPROSTINIL SODIUM
     Dosage: 0.080 ?G/KG, CONTINUING
     Route: 041

REACTIONS (4)
  - Injection site hypersensitivity [Unknown]
  - Injection site infection [Unknown]
  - Catheter site irritation [Unknown]
  - Injection site discharge [Unknown]
